FAERS Safety Report 9672484 (Version 4)
Quarter: 2014Q1

REPORT INFORMATION
  Report Type: Spontaneous
  Country: JP (occurrence: JP)
  Receive Date: 20131106
  Receipt Date: 20140210
  Transmission Date: 20141002
  Serious: Yes (Hospitalization)
  Sender: FDA-Public Use
  Company Number: JP-ABBVIE-13P-087-1136564-00

PATIENT
  Age: 81 Year
  Sex: Male

DRUGS (7)
  1. HUMIRA [Suspect]
     Indication: RHEUMATOID ARTHRITIS
     Route: 058
     Dates: start: 20130605, end: 20130605
  2. HUMIRA [Suspect]
     Route: 058
     Dates: start: 20130619, end: 20130619
  3. HUMIRA [Suspect]
     Route: 058
     Dates: start: 20130703, end: 20130703
  4. METHOTREXATE [Suspect]
     Indication: RHEUMATOID ARTHRITIS
     Route: 048
     Dates: end: 20130714
  5. PREDNISOLONE [Concomitant]
     Indication: RHEUMATOID ARTHRITIS
     Route: 048
  6. PREDNISOLONE [Concomitant]
     Route: 048
     Dates: start: 20130725, end: 20130726
  7. PREDNISOLONE [Concomitant]
     Route: 048
     Dates: start: 20130727, end: 20130904

REACTIONS (4)
  - Chest X-ray abnormal [Recovering/Resolving]
  - Lung disorder [Recovering/Resolving]
  - Infection [Recovering/Resolving]
  - Interstitial lung disease [Recovering/Resolving]
